FAERS Safety Report 4948284-5 (Version None)
Quarter: 2006Q1

REPORT INFORMATION
  Report Type: 
  Country: None (occurrence: None)
  Receive Date: 20060127
  Receipt Date: 20050209
  Transmission Date: 20060701
  Serious: Yes (Death, Hospitalization)
  Sender: FDA-Public Use
  Company Number: 05-02-0182

PATIENT
  Age: 81 Year
  Sex: Male

DRUGS (1)
  1. CLOZAPINE [Suspect]
     Dosage: 18.8 MG QD, ORAL
     Route: 048
     Dates: start: 20041201, end: 20050101

REACTIONS (1)
  - UNEVALUABLE EVENT [None]
